FAERS Safety Report 16760718 (Version 1)
Quarter: 2019Q3

REPORT INFORMATION
  Report Type: Spontaneous
  Country: GB (occurrence: GB)
  Receive Date: 20190830
  Receipt Date: 20190830
  Transmission Date: 20191005
  Serious: Yes (Other)
  Sender: FDA-Public Use
  Company Number: GB-PFIZER INC-2019371475

PATIENT
  Age: 6 Decade
  Sex: Female

DRUGS (1)
  1. EFEXOR XL [Suspect]
     Active Substance: VENLAFAXINE HYDROCHLORIDE
     Dosage: UNK

REACTIONS (4)
  - Neuroleptic malignant syndrome [Unknown]
  - Overdose [Unknown]
  - Blood creatine phosphokinase increased [Unknown]
  - Serotonin syndrome [Unknown]
